FAERS Safety Report 10637631 (Version 1)
Quarter: 2014Q4

REPORT INFORMATION
  Report Type: Report from Study
  Country: IT (occurrence: IT)
  Receive Date: 20141208
  Receipt Date: 20141208
  Transmission Date: 20150529
  Serious: Yes (Death, Other)
  Sender: FDA-Public Use
  Company Number: IT-SA-2014SA168565

PATIENT

DRUGS (2)
  1. CLOFARABINE [Suspect]
     Active Substance: CLOFARABINE
     Indication: ACUTE MYELOID LEUKAEMIA
     Dosage: ADMINISTERED IN DIFFERENT DOSES: 10MG/M2/D, 20MG/M2/D, 25MG/M2/D, 30MG/M2/D, 40MG/M2/D
     Route: 065
  2. CYTARABINE. [Suspect]
     Active Substance: CYTARABINE
     Indication: ACUTE MYELOID LEUKAEMIA
     Dosage: 1000-2000 MG/M2/D FOR 5, IN 2 CASES DOSE WAS LOWER THAN 500 MG/M2/D
     Route: 065

REACTIONS (2)
  - Haematotoxicity [Unknown]
  - Death [Fatal]
